FAERS Safety Report 5480772-8 (Version None)
Quarter: 2007Q3

REPORT INFORMATION
  Report Type: 
  Country: None (occurrence: None)
  Receive Date: 20070917
  Receipt Date: 20070531
  Transmission Date: 20080115
  Serious: Yes (Life-Threatening)
  Sender: FDA-Public Use
  Company Number: BDI-009485

PATIENT
  Age: 59 Year
  Sex: Male
  Weight: 58 kg

DRUGS (2)
  1. MULTIHANCE [Suspect]
     Indication: NUCLEAR MAGNETIC RESONANCE IMAGING
     Dosage: 30 MG ONCE IV
     Route: 042
     Dates: start: 20070502, end: 20070502
  2. MULTIHANCE [Suspect]
     Indication: PERIPHERAL VASCULAR DISORDER
     Dosage: 30 MG ONCE IV
     Route: 042
     Dates: start: 20070502, end: 20070502

REACTIONS (4)
  - OEDEMA MOUTH [None]
  - PHARYNGEAL OEDEMA [None]
  - SNEEZING [None]
  - URTICARIA [None]
